FAERS Safety Report 8257001-5 (Version None)
Quarter: 2012Q2

REPORT INFORMATION
  Report Type: 
  Country: None (occurrence: None)
  Receive Date: 20120403
  Receipt Date: 20120330
  Transmission Date: 20120825
  Serious: Yes (Death)
  Sender: FDA-Public Use
  Company Number: US-GLAXOSMITHKLINE-A0933805A

PATIENT
  Age: 66 Year
  Sex: Female
  Weight: 72.7 kg

DRUGS (5)
  1. GLYBURIDE [Concomitant]
  2. PRINIVIL [Concomitant]
  3. PREVACID [Concomitant]
  4. AVANDIA [Suspect]
     Indication: DIABETES MELLITUS
     Dosage: 4MG TWICE PER DAY
     Route: 048
     Dates: start: 20000101, end: 20080712
  5. GLUCOPHAGE [Concomitant]

REACTIONS (3)
  - CONGESTIVE CARDIOMYOPATHY [None]
  - CARDIAC FAILURE CONGESTIVE [None]
  - ARTERIOSCLEROSIS [None]
